FAERS Safety Report 23445427 (Version 2)
Quarter: 2025Q2

REPORT INFORMATION
  Report Type: Spontaneous
  Country: ES (occurrence: ES)
  Receive Date: 20240126
  Receipt Date: 20250521
  Transmission Date: 20250717
  Serious: Yes (Other)
  Sender: CELLTRION
  Company Number: ES-CELLTRION INC.-2024ES001495

PATIENT

DRUGS (20)
  1. ADALIMUMAB [Suspect]
     Active Substance: ADALIMUMAB
     Indication: Peripheral spondyloarthritis
     Route: 065
  2. ADALIMUMAB [Suspect]
     Active Substance: ADALIMUMAB
     Indication: Axial spondyloarthritis
  3. ADALIMUMAB [Suspect]
     Active Substance: ADALIMUMAB
     Indication: Inflammatory bowel disease
  4. INFLIXIMAB [Suspect]
     Active Substance: INFLIXIMAB
     Indication: Peripheral spondyloarthritis
  5. INFLIXIMAB [Suspect]
     Active Substance: INFLIXIMAB
     Indication: Axial spondyloarthritis
  6. INFLIXIMAB [Suspect]
     Active Substance: INFLIXIMAB
     Indication: Inflammatory bowel disease
  7. ETANERCEPT [Concomitant]
     Active Substance: ETANERCEPT
     Indication: Axial spondyloarthritis
  8. ETANERCEPT [Concomitant]
     Active Substance: ETANERCEPT
     Indication: Peripheral spondyloarthritis
  9. ETANERCEPT [Concomitant]
     Active Substance: ETANERCEPT
     Indication: Inflammatory bowel disease
  10. SECUKINUMAB [Concomitant]
     Active Substance: SECUKINUMAB
     Indication: Axial spondyloarthritis
  11. SECUKINUMAB [Concomitant]
     Active Substance: SECUKINUMAB
     Indication: Peripheral spondyloarthritis
  12. SECUKINUMAB [Concomitant]
     Active Substance: SECUKINUMAB
     Indication: Inflammatory bowel disease
  13. USTEKINUMAB [Concomitant]
     Active Substance: USTEKINUMAB
     Indication: Peripheral spondyloarthritis
  14. USTEKINUMAB [Concomitant]
     Active Substance: USTEKINUMAB
     Indication: Axial spondyloarthritis
  15. USTEKINUMAB [Concomitant]
     Active Substance: USTEKINUMAB
     Indication: Inflammatory bowel disease
  16. USTEKINUMAB [Concomitant]
     Active Substance: USTEKINUMAB
     Indication: Musculoskeletal disorder
  17. GOLIMUMAB [Concomitant]
     Active Substance: GOLIMUMAB
     Indication: Musculoskeletal disorder
  18. GOLIMUMAB [Concomitant]
     Active Substance: GOLIMUMAB
     Indication: Inflammatory bowel disease
  19. GOLIMUMAB [Concomitant]
     Active Substance: GOLIMUMAB
     Indication: Peripheral spondyloarthritis
  20. GOLIMUMAB [Concomitant]
     Active Substance: GOLIMUMAB
     Indication: Axial spondyloarthritis

REACTIONS (2)
  - Peripheral spondyloarthritis [Recovering/Resolving]
  - Axial spondyloarthritis [Recovering/Resolving]
